FAERS Safety Report 16053599 (Version 1)
Quarter: 2019Q1

REPORT INFORMATION
  Report Type: Spontaneous
  Country: US (occurrence: US)
  Receive Date: 20190308
  Receipt Date: 20190308
  Transmission Date: 20190418
  Serious: Yes (Other)
  Sender: FDA-Public Use
  Company Number: US-UCBSA-2019003318

PATIENT
  Age: 43 Year
  Sex: Female

DRUGS (1)
  1. CIMZIA [Suspect]
     Active Substance: CERTOLIZUMAB PEGOL
     Indication: CROHN^S DISEASE
     Dosage: 200 MG, EV 2 WEEKS(QOW)
     Dates: start: 20140601

REACTIONS (4)
  - Drug effect decreased [Unknown]
  - Crohn^s disease [Recovered/Resolved]
  - Product dose omission [Unknown]
  - Small intestine ulcer [Not Recovered/Not Resolved]

NARRATIVE: CASE EVENT DATE: 20190121
